FAERS Safety Report 5281211-2 (Version None)
Quarter: 2007Q1

REPORT INFORMATION
  Report Type: 
  Country: None (occurrence: None)
  Receive Date: 20061220
  Receipt Date: 20060417
  Transmission Date: 20070707
  Serious: Yes (Other)
  Sender: FDA-Public Use
  Company Number: 2006052306

PATIENT
  Age: 67 Year
  Sex: Female
  Weight: 69.8539 kg

DRUGS (3)
  1. CARDURA [Suspect]
     Indication: HYPERTENSION
     Dosage: 4 MG (4 MG QD INTERVAL: EVERY DAY), ORAL
     Route: 048
     Dates: start: 20060405
  2. VERAPAMIL [Concomitant]
  3. LEVAQUIN [Concomitant]

REACTIONS (6)
  - ABDOMINAL PAIN LOWER [None]
  - ASTHENIA [None]
  - DYSPNOEA [None]
  - INFECTION [None]
  - PALPITATIONS [None]
  - SYNCOPE [None]
